FAERS Safety Report 25121122 (Version 2)
Quarter: 2025Q2

REPORT INFORMATION
  Report Type: Spontaneous
  Country: US (occurrence: US)
  Receive Date: 20250326
  Receipt Date: 20250424
  Transmission Date: 20250716
  Serious: Yes (Other)
  Sender: AMGEN
  Company Number: US-AMGEN-USASP2025055418

PATIENT
  Age: 74 Year
  Sex: Female

DRUGS (1)
  1. NEULASTA [Suspect]
     Active Substance: PEGFILGRASTIM
     Indication: Prophylaxis
     Route: 065

REACTIONS (6)
  - Thrombosis [Unknown]
  - Malaise [Unknown]
  - Tremor [Unknown]
  - Visual impairment [Unknown]
  - Unintentional medical device removal [Unknown]
  - Device monitoring procedure not performed [Unknown]

NARRATIVE: CASE EVENT DATE: 20250301
